FAERS Safety Report 7571959-9 (Version None)
Quarter: 2011Q2

REPORT INFORMATION
  Report Type: 
  Country: None (occurrence: None)
  Receive Date: 20110624
  Receipt Date: 20110414
  Transmission Date: 20111010
  Serious: No
  Sender: FDA-Public Use
  Company Number: A0923002A

PATIENT
  Sex: Male

DRUGS (3)
  1. FISH OIL [Concomitant]
  2. NIACIN [Concomitant]
  3. VERAMYST [Suspect]
     Indication: UVULITIS
     Dosage: 2SPR PER DAY
     Route: 045
     Dates: start: 20110406, end: 20110411

REACTIONS (6)
  - LIP SWELLING [None]
  - RASH [None]
  - HYPOAESTHESIA FACIAL [None]
  - SWELLING FACE [None]
  - DYSGEUSIA [None]
  - LACRIMATION INCREASED [None]
